FAERS Safety Report 8584200-5 (Version None)
Quarter: 2012Q3

REPORT INFORMATION
  Report Type: 
  Country: None (occurrence: None)
  Receive Date: 20120810
  Receipt Date: 20120730
  Transmission Date: 20120928
  Serious: Yes (Hospitalization, Disabling, Other)
  Sender: FDA-Public Use
  Company Number: NL-BIOGENIDEC-2012BI005290

PATIENT
  Age: 45 Year
  Sex: Female

DRUGS (2)
  1. FLUTICASON PROPRIONATE [Concomitant]
     Indication: HYPOACUSIS
     Route: 045
     Dates: start: 20120123, end: 20120207
  2. TYSABRI [Suspect]
     Indication: RELAPSING-REMITTING MULTIPLE SCLEROSIS
     Route: 042
     Dates: start: 20080521, end: 20120130

REACTIONS (6)
  - HERPES ZOSTER [None]
  - UVEITIS [None]
  - VISUAL ACUITY REDUCED [None]
  - HERPES SIMPLEX OPHTHALMIC [None]
  - RETINAL INJURY [None]
  - HYPOACUSIS [None]
